FAERS Safety Report 4501309-3 (Version None)
Quarter: 2004Q3

REPORT INFORMATION
  Report Type: 
  Country: None (occurrence: None)
  Receive Date: 20040928
  Receipt Date: 20040813
  Transmission Date: 20050211
  Serious: No
  Sender: FDA-Public Use
  Company Number: 04P-163-0270812-00

PATIENT
  Age: 35 Year

DRUGS (5)
  1. HUMIRA [Suspect]
     Dosage: 40 MG 1 IN 2 WK PER ORAL
     Route: 048
     Dates: start: 20031001
  2. AMITRIPTYLINE [Concomitant]
  3. CYCLOBENZAPRINE HYDROCHLORIDE [Concomitant]
  4. PAROXETINE HYDROCHLORIDE [Concomitant]
  5. OXYCOCET [Concomitant]

REACTIONS (2)
  - HYPERCALCAEMIA [None]
  - NEPHROCALCINOSIS [None]
